FAERS Safety Report 22077240 (Version 1)
Quarter: 2023Q1

REPORT INFORMATION
  Report Type: Report from Study
  Country: CO (occurrence: CO)
  Receive Date: 20230309
  Receipt Date: 20230309
  Transmission Date: 20230417
  Serious: Yes (Other)
  Sender: FDA-Public Use
  Company Number: CO-ABBVIE-4332147

PATIENT
  Age: 21 Year
  Sex: Female
  Weight: 60 kg

DRUGS (1)
  1. SKYRIZI [Suspect]
     Active Substance: RISANKIZUMAB-RZAA
     Indication: Psoriasis
     Dosage: STRENGTH: 75 MG
     Route: 058
     Dates: start: 20210519

REACTIONS (3)
  - Neuromyelitis optica spectrum disorder [Unknown]
  - Nervous system disorder [Recovering/Resolving]
  - Emotional disorder [Recovering/Resolving]

NARRATIVE: CASE EVENT DATE: 20230101
